FAERS Safety Report 22126294 (Version 1)
Quarter: 2023Q1

REPORT INFORMATION
  Report Type: Spontaneous
  Country: US (occurrence: US)
  Receive Date: 20230322
  Receipt Date: 20230322
  Transmission Date: 20230418
  Serious: Yes (Hospitalization)
  Sender: FDA-Public Use
  Company Number: US-TEVA-2023-US-2866917

PATIENT
  Age: 67 Year
  Sex: Female
  Weight: 76.2 kg

DRUGS (2)
  1. COPAXONE [Suspect]
     Active Substance: GLATIRAMER ACETATE
     Indication: Multiple sclerosis
     Route: 065
  2. ADDERALL [Concomitant]
     Active Substance: AMPHETAMINE ASPARTATE\AMPHETAMINE SULFATE\DEXTROAMPHETAMINE SACCHARATE\DEXTROAMPHETAMINE SULFATE
     Indication: Product used for unknown indication
     Dosage: FOURTH OF A PILL EVERY COUPLE OF WEEKS
     Route: 065

REACTIONS (7)
  - Pseudosepsis [Unknown]
  - Chills [Unknown]
  - Tremor [Unknown]
  - Feeling cold [Unknown]
  - Vomiting [Unknown]
  - Body temperature fluctuation [Unknown]
  - Treatment noncompliance [Unknown]
